FAERS Safety Report 5649393-8 (Version None)
Quarter: 2008Q1

REPORT INFORMATION
  Report Type: 
  Country: None (occurrence: None)
  Receive Date: 20080304
  Receipt Date: 20080228
  Transmission Date: 20080703
  Serious: Yes (Other)
  Sender: FDA-Public Use
  Company Number: CH-WYE-G01158308

PATIENT
  Age: 20 Year
  Sex: Male

DRUGS (2)
  1. EFFEXOR [Suspect]
     Indication: DEPRESSION
     Dosage: UP TO 300 MG PER DAY
     Route: 048
     Dates: end: 20080201
  2. REMERON [Concomitant]
     Dosage: 15-30 MG PER DAY

REACTIONS (1)
  - EPILEPSY [None]
